FAERS Safety Report 4942986-2 (Version None)
Quarter: 2006Q1

REPORT INFORMATION
  Report Type: 
  Country: None (occurrence: None)
  Receive Date: 20060314
  Receipt Date: 20060308
  Transmission Date: 20060701
  Serious: Yes (Hospitalization)
  Sender: FDA-Public Use
  Company Number: CA-GLAXOSMITHKLINE-A0597123A

PATIENT
  Age: 60 Year
  Sex: Male
  Weight: 164.5 kg

DRUGS (3)
  1. AVANDIA [Suspect]
     Dosage: 8MGD UNKNOWN
     Route: 048
     Dates: start: 20011015, end: 20050121
  2. METFORMIN [Concomitant]
  3. GLYBURIDE [Concomitant]

REACTIONS (7)
  - CARDIAC FAILURE CONGESTIVE [None]
  - CHEST DISCOMFORT [None]
  - DYSPNOEA [None]
  - GALLOP RHYTHM PRESENT [None]
  - JUGULAR VEIN DISTENSION [None]
  - OEDEMA PERIPHERAL [None]
  - PULMONARY OEDEMA [None]
